FAERS Safety Report 4544964-4 (Version None)
Quarter: 2005Q1

REPORT INFORMATION
  Report Type: 
  Country: None (occurrence: None)
  Receive Date: 20050105
  Receipt Date: 20041222
  Transmission Date: 20050727
  Serious: Yes (Hospitalization)
  Sender: FDA-Public Use
  Company Number: US-ROCHE-390227

PATIENT
  Age: 53 Year
  Sex: Female
  Weight: 95.4 kg

DRUGS (16)
  1. CAPECITABINE [Suspect]
     Indication: METASTATIC RENAL CELL CARCINOMA
     Dosage: TDD EQUATES TO 2800MG.  INTERMITTENT TREATMENT, THREE WEEKS TREATMENT FOLLOWED BY ONE WEEK REST.
     Route: 048
  2. GEMCITABINE [Suspect]
     Indication: METASTATIC RENAL CELL CARCINOMA
     Dosage: DOSE EQUATES TO 2070MG.  INTERMITTENT TREATMENT, THREE WEEKS THERAPY FOLLOWED BY ONE WEEK REST.
     Route: 042
  3. LOVENOX [Concomitant]
  4. SEREVENT [Concomitant]
  5. ALBUTEROL [Concomitant]
     Dosage: P.R.N.
     Route: 055
  6. NORVASC [Concomitant]
  7. PROTONIX [Concomitant]
  8. ALLEGRA [Concomitant]
  9. IRON [Concomitant]
  10. SUDAFED S.A. [Concomitant]
     Dosage: ^DAILY^.
  11. MULTIVITAMIN NOS [Concomitant]
     Dosage: ^DAILY^.
  12. NAPROSYN [Concomitant]
  13. ARANESP [Concomitant]
     Route: 058
  14. HEPARIN [Concomitant]
     Dosage: ^PER MDA PROTOCOL FOR CENTRAL LINES^.
  15. DARVOCET [Concomitant]
     Dosage: ^OCCASIONAL^.
  16. TYLENOL [Concomitant]
     Dosage: ^OCCASIONAL^.

REACTIONS (9)
  - ABDOMINAL TENDERNESS [None]
  - BACTERIAL INFECTION [None]
  - CATHETER RELATED INFECTION [None]
  - CELLULITIS [None]
  - DISEASE PROGRESSION [None]
  - DYSURIA [None]
  - INCONTINENCE [None]
  - INFECTION [None]
  - NOCTURIA [None]
